FAERS Safety Report 7006449-5 (Version None)
Quarter: 2010Q3

REPORT INFORMATION
  Report Type: 
  Country: None (occurrence: None)
  Receive Date: 20100921
  Receipt Date: 20100920
  Transmission Date: 20110219
  Serious: Yes (Hospitalization)
  Sender: FDA-Public Use
  Company Number: DE-MERCK-1009DEU00081

PATIENT
  Age: 23 Year
  Sex: Female

DRUGS (2)
  1. SINGULAIR [Suspect]
     Indication: ASTHMA
     Route: 048
     Dates: start: 20100601, end: 20100913
  2. DIENOGEST AND ETHINYL ESTRADIOL [Concomitant]
     Route: 065
     Dates: start: 20060101

REACTIONS (1)
  - GRAND MAL CONVULSION [None]
